FAERS Safety Report 5569077-4 (Version None)
Quarter: 2007Q4

REPORT INFORMATION
  Report Type: 
  Country: None (occurrence: None)
  Receive Date: 20071220
  Receipt Date: 20070628
  Transmission Date: 20080405
  Serious: No
  Sender: FDA-Public Use
  Company Number: A0660711A

PATIENT
  Age: 70 Year
  Sex: Female

DRUGS (8)
  1. AVODART [Suspect]
     Indication: BENIGN PROSTATIC HYPERPLASIA
     Dosage: .5MG PER DAY
     Route: 048
     Dates: start: 20061101
  2. VERAPAMIL [Concomitant]
  3. DIOVAN [Concomitant]
  4. KLOR-CON [Concomitant]
  5. CRESTOR [Concomitant]
  6. FLOMAX [Concomitant]
  7. IBUPROFEN [Concomitant]
  8. TYLENOL [Concomitant]

REACTIONS (1)
  - DRUG INEFFECTIVE [None]
